FAERS Safety Report 9129737 (Version 1)
Quarter: 2013Q1

REPORT INFORMATION
  Report Type: Spontaneous
  Country: CA (occurrence: CA)
  Receive Date: 20130228
  Receipt Date: 20130228
  Transmission Date: 20140127
  Serious: Yes (Hospitalization, Disabling)
  Sender: FDA-Public Use
  Company Number: CA-B.I. PHARMACEUTICALS,INC./RIDGEFIELD-2013-CN-00316CN

PATIENT
  Sex: Male
  Weight: 124.73 kg

DRUGS (7)
  1. PRADAX [Suspect]
     Dosage: 300 MG
     Route: 048
  2. ALLOPURINOL [Concomitant]
  3. AMLODIPINE [Concomitant]
  4. CARVEDILOL [Concomitant]
  5. COVERSYL [Concomitant]
  6. CRESTOR [Concomitant]
  7. LASIX [Concomitant]

REACTIONS (4)
  - Abdominal distension [Recovered/Resolved]
  - Cellulitis [Recovered/Resolved]
  - Rash papular [Recovered/Resolved]
  - Skin exfoliation [Recovered/Resolved]
